FAERS Safety Report 7914190-7 (Version None)
Quarter: 2011Q4

REPORT INFORMATION
  Report Type: 
  Country: None (occurrence: None)
  Receive Date: 20111115
  Receipt Date: 20111115
  Transmission Date: 20120403
  Serious: Yes (Hospitalization)
  Sender: FDA-Public Use
  Company Number: None

PATIENT
  Age: 56 Year
  Sex: Male
  Weight: 135.17 kg

DRUGS (1)
  1. ABILIFY [Suspect]
     Indication: MENTAL DISORDER
     Dosage: X1
     Route: 048
     Dates: start: 20111008, end: 20111111

REACTIONS (21)
  - TRANSIENT ISCHAEMIC ATTACK [None]
  - CONSTIPATION [None]
  - TREMOR [None]
  - HEADACHE [None]
  - ANXIETY [None]
  - FEELING HOT [None]
  - DROOLING [None]
  - VOMITING [None]
  - PYREXIA [None]
  - HYPERHIDROSIS [None]
  - CARDIAC DISORDER [None]
  - MUSCLE SPASMS [None]
  - NAUSEA [None]
  - RESTLESSNESS [None]
  - INCREASED APPETITE [None]
  - URTICARIA [None]
  - CONFUSIONAL STATE [None]
  - DIZZINESS [None]
  - AKATHISIA [None]
  - INSOMNIA [None]
  - MUSCLE RIGIDITY [None]
